FAERS Safety Report 23390661 (Version 2)
Quarter: 2024Q1

REPORT INFORMATION
  Report Type: Spontaneous
  Country: US (occurrence: US)
  Receive Date: 20240111
  Receipt Date: 20240301
  Transmission Date: 20240410
  Serious: Yes (Other)
  Sender: FDA-Public Use
  Company Number: US-SA-SAC20240109001012

PATIENT
  Age: 68 Year
  Sex: Male

DRUGS (1)
  1. REZUROCK [Suspect]
     Active Substance: BELUMOSUDIL
     Indication: Acute myeloid leukaemia
     Dosage: 200 MG, BID
     Route: 048
     Dates: start: 20220827

REACTIONS (9)
  - Bradycardia [Unknown]
  - Ankylosing spondylitis [Unknown]
  - Spinal pain [Unknown]
  - Eosinophil count increased [Unknown]
  - Inflammation [Unknown]
  - Balance disorder [Unknown]
  - Gastroenteritis viral [Unknown]
  - Inappropriate schedule of product administration [Unknown]
  - Product use in unapproved indication [Unknown]

NARRATIVE: CASE EVENT DATE: 20220827
